FAERS Safety Report 7386429-0 (Version None)
Quarter: 2011Q1

REPORT INFORMATION
  Report Type: 
  Country: None (occurrence: None)
  Receive Date: 20110331
  Receipt Date: 20110328
  Transmission Date: 20110831
  Serious: Yes (Death, Hospitalization)
  Sender: FDA-Public Use
  Company Number: PHHY2010BR43990

PATIENT
  Sex: Male

DRUGS (7)
  1. EXELON [Suspect]
     Indication: DEMENTIA
     Dosage: 2 DF, QD
     Route: 048
     Dates: start: 20070101, end: 20100101
  2. SIMVASTATIN [Concomitant]
     Indication: BLOOD CHOLESTEROL INCREASED
     Dosage: 2 DF, QD
     Route: 048
  3. PANTOPRAZOLE [Concomitant]
     Indication: GASTRITIS
     Dosage: 1 DF, QD
     Route: 048
  4. GLIMEPIRIDE [Concomitant]
     Indication: TYPE 2 DIABETES MELLITUS
     Dosage: 2 DF, QD
     Route: 048
  5. METFORMIN HCL [Concomitant]
     Indication: TYPE 2 DIABETES MELLITUS
     Dosage: 2 DF, QD
     Route: 048
  6. CAPTOPRIL [Concomitant]
     Indication: HYPERTENSION
     Dosage: 3 DF, QD
     Route: 048
  7. ACETYLCYSTEINE [Concomitant]
     Indication: CHRONIC OBSTRUCTIVE PULMONARY DISEASE
     Dosage: 2 DF, QD
     Route: 048

REACTIONS (6)
  - NOSOCOMIAL INFECTION [None]
  - SEPTIC SHOCK [None]
  - SEPSIS [None]
  - CHRONIC OBSTRUCTIVE PULMONARY DISEASE [None]
  - MULTI-ORGAN FAILURE [None]
  - RESPIRATORY ARREST [None]
